FAERS Safety Report 4335194-X (Version None)
Quarter: 2004Q2

REPORT INFORMATION
  Report Type: 
  Country: None (occurrence: None)
  Receive Date: 20040408
  Receipt Date: 20030808
  Transmission Date: 20050107
  Serious: Yes (Other)
  Sender: FDA-Public Use
  Company Number: PHHO2003CA10187

PATIENT
  Age: 68 Year
  Sex: Female

DRUGS (5)
  1. CELEBREX [Concomitant]
  2. DOMPERIDONE [Concomitant]
  3. MICARDIS [Concomitant]
  4. CRESTOR [Concomitant]
  5. ZELNORM [Suspect]
     Indication: IRRITABLE BOWEL SYNDROME
     Dosage: 6 MG, QD
     Route: 048
     Dates: start: 20030709, end: 20030710

REACTIONS (9)
  - ABDOMINAL PAIN [None]
  - ABNORMAL FAECES [None]
  - CHILLS [None]
  - DIARRHOEA [None]
  - FATIGUE [None]
  - HAEMATOCHEZIA [None]
  - HEADACHE [None]
  - NAUSEA [None]
  - PYREXIA [None]
